FAERS Safety Report 19002892 (Version 1)
Quarter: 2021Q1

REPORT INFORMATION
  Report Type: Spontaneous
  Country: CO (occurrence: CO)
  Receive Date: 20210312
  Receipt Date: 20210312
  Transmission Date: 20210420
  Serious: Yes (Death, Hospitalization, Other)
  Sender: FDA-Public Use
  Company Number: CO-MSNLABS-2021MSNSPO00068

PATIENT

DRUGS (1)
  1. ABIRATERONE ACETATE TABLETS 250MG [Suspect]
     Active Substance: ABIRATERONE ACETATE
     Indication: PROSTATE CANCER
     Route: 048
     Dates: start: 202102, end: 20210303

REACTIONS (7)
  - Respiratory arrest [Fatal]
  - Diarrhoea [Unknown]
  - Haemorrhage urinary tract [Unknown]
  - Abdominal pain [Unknown]
  - Pain [Unknown]
  - Mouth haemorrhage [Unknown]
  - Respiratory failure [Unknown]

NARRATIVE: CASE EVENT DATE: 20210226
